FAERS Safety Report 8865862 (Version 1)
Quarter: 2012Q4

REPORT INFORMATION
  Report Type: Report from Study
  Country: US (occurrence: US)
  Receive Date: 20121025
  Receipt Date: 20121025
  Transmission Date: 20130627
  Serious: No
  Sender: FDA-Public Use
  Company Number: US-ABBOTT-12P-163-0916207-00

PATIENT
  Age: 37 None
  Sex: Female
  Weight: 57.66 kg

DRUGS (6)
  1. LUPRON DEPOT 3.75 MG [Suspect]
     Indication: ENDOMETRIOSIS
     Route: 058
  2. BYSTOLIC [Concomitant]
     Indication: HYPERTENSION
     Route: 048
  3. BYSTOLIC [Concomitant]
     Indication: PALPITATIONS
  4. SINGULAR [Concomitant]
     Indication: HYPERSENSITIVITY
  5. MULTIVITAMIN [Concomitant]
     Indication: PRODUCT USED FOR UNKNOWN INDICATION
  6. CALCIUM [Concomitant]
     Indication: PRODUCT USED FOR UNKNOWN INDICATION

REACTIONS (2)
  - Halo vision [Not Recovered/Not Resolved]
  - Sinusitis [Recovering/Resolving]
